FAERS Safety Report 10515116 (Version 2)
Quarter: 2014Q4

REPORT INFORMATION
  Report Type: Spontaneous
  Country: FR (occurrence: FR)
  Receive Date: 20141014
  Receipt Date: 20141016
  Transmission Date: 20150528
  Serious: Yes (Life-Threatening, Hospitalization, Other)
  Sender: FDA-Public Use
  Company Number: FR-ROCHE-1473950

PATIENT
  Age: 70 Year
  Sex: Male

DRUGS (4)
  1. PERFALGAN [Concomitant]
     Active Substance: ACETAMINOPHEN
     Route: 065
  2. POLARAMINE [Concomitant]
     Active Substance: DEXCHLORPHENIRAMINE MALEATE
     Route: 065
  3. MABTHERA [Suspect]
     Active Substance: RITUXIMAB
     Indication: DIFFUSE LARGE B-CELL LYMPHOMA
     Route: 042
  4. SOLU-MEDROL [Concomitant]
     Active Substance: METHYLPREDNISOLONE SODIUM SUCCINATE

REACTIONS (4)
  - Coma [Not Recovered/Not Resolved]
  - Seizure [Recovered/Resolved]
  - Pain [Recovered/Resolved]
  - Cerebral haemorrhage [Unknown]
